FAERS Safety Report 10154543 (Version 1)
Quarter: 2014Q2

REPORT INFORMATION
  Report Type: Spontaneous
  Country: US (occurrence: US)
  Receive Date: 20140506
  Receipt Date: 20140506
  Transmission Date: 20141212
  Serious: No
  Sender: FDA-Public Use
  Company Number: US-PFIZER INC-2014121228

PATIENT
  Age: 47 Year
  Sex: Female
  Weight: 44.9 kg

DRUGS (1)
  1. NEURONTIN [Suspect]
     Indication: MYELITIS TRANSVERSE
     Dosage: 300 MG, 3X/DAY

REACTIONS (3)
  - Intentional product misuse [Unknown]
  - Expired product administered [Unknown]
  - Headache [Unknown]
